FAERS Safety Report 6341102-2 (Version None)
Quarter: 2009Q3

REPORT INFORMATION
  Report Type: 
  Country: None (occurrence: None)
  Receive Date: 20090904
  Receipt Date: 20090826
  Transmission Date: 20100115
  Serious: Yes (Hospitalization)
  Sender: FDA-Public Use
  Company Number: B0591278A

PATIENT
  Sex: Male

DRUGS (3)
  1. AUGMENTIN '125' [Suspect]
     Indication: PNEUMONIA
     Route: 048
     Dates: start: 20090724, end: 20090701
  2. AMOXICILLIN AND CLAVULANATE POTASSIUM [Suspect]
     Indication: PNEUMONIA
     Route: 048
     Dates: start: 20090720, end: 20090722
  3. CIPROFLAXACIN [Concomitant]
     Indication: PNEUMONIA
     Route: 048
     Dates: start: 20090722

REACTIONS (2)
  - AGITATION [None]
  - HALLUCINATION [None]
